FAERS Safety Report 18814316 (Version 1)
Quarter: 2021Q1

REPORT INFORMATION
  Report Type: Spontaneous
  Country: JP (occurrence: JP)
  Receive Date: 20210201
  Receipt Date: 20210201
  Transmission Date: 20210419
  Serious: Yes (Other)
  Sender: FDA-Public Use
  Company Number: JP-SUN PHARMACEUTICAL INDUSTRIES LTD-2021RR-278141

PATIENT
  Age: 50 Year
  Sex: Male

DRUGS (7)
  1. PEMETREXED. [Suspect]
     Active Substance: PEMETREXED
     Dosage: 3 COURSES, UNK
     Route: 065
  2. BEVACIZUMAB. [Suspect]
     Active Substance: BEVACIZUMAB
     Dosage: 3 COURSES, UNK
     Route: 065
  3. PEMETREXED. [Suspect]
     Active Substance: PEMETREXED
     Dosage: 4 COURSES, UNK
     Route: 065
  4. BEVACIZUMAB. [Suspect]
     Active Substance: BEVACIZUMAB
     Indication: LUNG ADENOCARCINOMA
     Dosage: 4 COURSES, UNK
     Route: 065
  5. CARBOPLATIN. [Suspect]
     Active Substance: CARBOPLATIN
     Indication: LUNG ADENOCARCINOMA
     Dosage: 4 COURSES, UNK
     Route: 065
  6. PEMETREXED. [Suspect]
     Active Substance: PEMETREXED
     Indication: LUNG ADENOCARCINOMA
     Dosage: 4 COURSES, UNK
     Route: 065
  7. CISPLATIN. [Suspect]
     Active Substance: CISPLATIN
     Indication: LUNG ADENOCARCINOMA
     Dosage: 4 COURSES, UNK
     Route: 065

REACTIONS (2)
  - Neoplasm progression [Unknown]
  - Neoplasm recurrence [Unknown]
